FAERS Safety Report 15289835 (Version 1)
Quarter: 2018Q3

REPORT INFORMATION
  Report Type: Report from Study
  Country: CN (occurrence: CN)
  Receive Date: 20180817
  Receipt Date: 20180817
  Transmission Date: 20181010
  Serious: Yes (Death, Hospitalization)
  Sender: FDA-Public Use
  Company Number: CN-CELGENEUS-CHN-20180707227

PATIENT
  Age: 66 Year
  Sex: Female
  Weight: 90 kg

DRUGS (3)
  1. ABRAXANE [Suspect]
     Active Substance: PACLITAXEL
     Indication: BREAST CANCER METASTATIC
     Route: 041
     Dates: start: 20180606
  2. CISPLATIN. [Concomitant]
     Active Substance: CISPLATIN
     Indication: BREAST CANCER METASTATIC
     Route: 065
     Dates: start: 20180606
  3. GLIMEPIRIDE AND ROSIGLITAZONE [Concomitant]
     Indication: TYPE 2 DIABETES MELLITUS
     Route: 065

REACTIONS (3)
  - Diarrhoea [Recovering/Resolving]
  - Seizure [Unknown]
  - Diabetic ketoacidosis [Fatal]

NARRATIVE: CASE EVENT DATE: 20180611
